FAERS Safety Report 7612231-8 (Version None)
Quarter: 2011Q3

REPORT INFORMATION
  Report Type: 
  Country: None (occurrence: None)
  Receive Date: 20110715
  Receipt Date: 20110707
  Transmission Date: 20111222
  Serious: Yes (Hospitalization, Other)
  Sender: FDA-Public Use
  Company Number: IQ-SANOFI-AVENTIS-2011SA038988

PATIENT
  Age: 39 Year
  Sex: Female

DRUGS (5)
  1. FLUOROURACIL [Concomitant]
     Route: 040
     Dates: start: 20110514, end: 20110514
  2. ELOXATIN [Suspect]
     Route: 042
     Dates: start: 20110514, end: 20110514
  3. LEUCOVORIN CALCIUM [Concomitant]
     Route: 042
     Dates: start: 20110514, end: 20110514
  4. FLUOROURACIL [Concomitant]
     Route: 041
     Dates: start: 20110514, end: 20110514
  5. ELOXATIN [Suspect]
     Route: 042
     Dates: start: 20110319, end: 20110319

REACTIONS (2)
  - POSTERIOR REVERSIBLE ENCEPHALOPATHY SYNDROME [None]
  - CONVULSION [None]
